FAERS Safety Report 16880441 (Version 3)
Quarter: 2019Q4

REPORT INFORMATION
  Report Type: Report from Study
  Country: US (occurrence: US)
  Receive Date: 20191003
  Receipt Date: 20191125
  Transmission Date: 20200122
  Serious: Yes (Other)
  Sender: FDA-Public Use
  Company Number: US-SHIRE-US201931379

PATIENT
  Sex: Male

DRUGS (2)
  1. PENTASA [Suspect]
     Active Substance: MESALAMINE
     Indication: CROHN^S DISEASE
     Dosage: UNK, 1X/DAY:QD
     Route: 048
  2. PENTASA [Suspect]
     Active Substance: MESALAMINE
     Dosage: UNK, 4X/DAY:QID
     Route: 048

REACTIONS (3)
  - Near death experience [Unknown]
  - Crohn^s disease [Unknown]
  - Product administration interrupted [Unknown]
